FAERS Safety Report 5011045-5 (Version None)
Quarter: 2006Q2

REPORT INFORMATION
  Report Type: 
  Country: None (occurrence: None)
  Receive Date: 20060524
  Receipt Date: 20060524
  Transmission Date: 20061013
  Serious: Yes (Hospitalization)
  Sender: FDA-Public Use
  Company Number: None

PATIENT
  Age: 52 Year
  Sex: Male

DRUGS (1)
  1. SIROLIMUS 1.2 MG [Suspect]
     Indication: PROPHYLAXIS AGAINST TRANSPLANT REJECTION
     Dosage: 1.2 MG DAILY PO
     Route: 048

REACTIONS (3)
  - DRUG TOXICITY [None]
  - DYSPNOEA [None]
  - RENAL FAILURE ACUTE [None]
